FAERS Safety Report 7085482-1 (Version None)
Quarter: 2010Q4

REPORT INFORMATION
  Report Type: 
  Country: None (occurrence: None)
  Receive Date: 20101105
  Receipt Date: 20101102
  Transmission Date: 20110411
  Serious: Yes (Other)
  Sender: FDA-Public Use
  Company Number: JP-PFIZER INC-2010138977

PATIENT
  Age: 71 Year
  Sex: Female

DRUGS (2)
  1. ALDACTONE [Suspect]
     Route: 048
  2. AROMASIN [Suspect]
     Route: 048

REACTIONS (1)
  - NEUROLEPTIC MALIGNANT SYNDROME [None]
